FAERS Safety Report 4675896-9 (Version None)
Quarter: 2005Q2

REPORT INFORMATION
  Report Type: 
  Country: None (occurrence: None)
  Receive Date: 20050527
  Receipt Date: 20050519
  Transmission Date: 20051028
  Serious: Yes (Other)
  Sender: FDA-Public Use
  Company Number: US-JNJFOC-20050505545

PATIENT
  Sex: Female
  Weight: 50.8 kg

DRUGS (7)
  1. REMICADE [Suspect]
     Route: 042
  2. REMICADE [Suspect]
     Indication: RHEUMATOID ARTHRITIS
     Route: 042
  3. SYNTHROID [Concomitant]
  4. LORTAB [Concomitant]
  5. LORTAB [Concomitant]
     Indication: PAIN
  6. DIURETIC [Concomitant]
  7. DIGITEK [Concomitant]

REACTIONS (6)
  - CONTUSION [None]
  - COUGH [None]
  - FALL [None]
  - NEOPLASM [None]
  - OEDEMA PERIPHERAL [None]
  - PAIN IN EXTREMITY [None]
